FAERS Safety Report 6894858-4 (Version None)
Quarter: 2010Q3

REPORT INFORMATION
  Report Type: 
  Country: None (occurrence: None)
  Receive Date: 20100802
  Receipt Date: 20100719
  Transmission Date: 20110219
  Serious: Yes (Hospitalization, Congenital Anomaly)
  Sender: FDA-Public Use
  Company Number: TR-ELI_LILLY_AND_COMPANY-TR201007005619

PATIENT

DRUGS (2)
  1. HUMALOG MIX 75/25 [Suspect]
     Indication: DIABETES MELLITUS
     Dosage: 12 U, 2/D
     Route: 064
     Dates: end: 20100319
  2. IRON [Concomitant]
     Indication: SUPPLEMENTATION THERAPY
     Dosage: UNK, DAILY (1/D)
     Route: 064

REACTIONS (3)
  - CARDIAC SEPTAL DEFECT [None]
  - DRUG EXPOSURE DURING PREGNANCY [None]
  - RENAL MASS [None]
